FAERS Safety Report 9154741 (Version 1)
Quarter: 2013Q1

REPORT INFORMATION
  Report Type: Spontaneous
  Country: US (occurrence: None)
  Receive Date: 20130206
  Receipt Date: 20130206
  Transmission Date: 20140127
  Serious: Yes (Other)
  Sender: FDA-Public Use
  Company Number: FK201300350

PATIENT
  Age: 57 Year
  Sex: Female

DRUGS (3)
  1. DEXAMETHASONE [Suspect]
     Indication: DIURETIC THERAPY
  2. PHENYTOIN (PHENYTOIN) [Suspect]
  3. LEVETIRACETAM (LEVETIRACETAM) [Concomitant]

REACTIONS (7)
  - Drug interaction [None]
  - Thrombocytopenia [None]
  - Convulsion [None]
  - Rash [None]
  - Mental status changes [None]
  - Unresponsive to stimuli [None]
  - Drug hypersensitivity [None]
